FAERS Safety Report 13746020 (Version 1)
Quarter: 2017Q3

REPORT INFORMATION
  Report Type: Spontaneous
  Country: US (occurrence: US)
  Receive Date: 20170712
  Receipt Date: 20170712
  Transmission Date: 20171127
  Serious: Yes (Hospitalization, Disabling)
  Sender: FDA-Public Use
  Company Number: None

PATIENT
  Age: 47 Year
  Sex: Female
  Weight: 53.1 kg

DRUGS (6)
  1. DIAZEPAM. [Suspect]
     Active Substance: DIAZEPAM
     Indication: MUSCLE SPASMS
     Dosage: ?          OTHER STRENGTH:MG;QUANTITY:1 TABLET(S);?
     Route: 048
  2. MYRRH [Concomitant]
     Active Substance: MYRRH
  3. TUMERIC [Concomitant]
     Active Substance: HERBALS\TURMERIC
  4. FRANKINCENSE [Concomitant]
  5. VITAMIN C [Concomitant]
     Active Substance: ASCORBIC ACID
  6. OMEGA^S [Concomitant]

REACTIONS (24)
  - Tremor [None]
  - Loss of personal independence in daily activities [None]
  - Urinary incontinence [None]
  - Pyrexia [None]
  - Seizure [None]
  - Cognitive disorder [None]
  - Muscle spasms [None]
  - Anxiety [None]
  - Toothache [None]
  - Alopecia [None]
  - Blindness [None]
  - Weight decreased [None]
  - Paraesthesia [None]
  - Stress [None]
  - Pain [None]
  - Back pain [None]
  - Palpitations [None]
  - Amnesia [None]
  - Musculoskeletal stiffness [None]
  - Quality of life decreased [None]
  - Swelling [None]
  - Bedridden [None]
  - Myalgia [None]
  - Insomnia [None]

NARRATIVE: CASE EVENT DATE: 20160828
